FAERS Safety Report 5976005-6 (Version None)
Quarter: 2008Q4

REPORT INFORMATION
  Report Type: 
  Country: None (occurrence: None)
  Receive Date: 20081202
  Receipt Date: 20081126
  Transmission Date: 20090506
  Serious: Yes (Hospitalization, Other)
  Sender: FDA-Public Use
  Company Number: PHHY2008DE29824

PATIENT
  Sex: Female

DRUGS (8)
  1. TEGRETOL [Suspect]
     Dosage: 1/2 TABLET IN EVENING
     Route: 048
     Dates: end: 20081024
  2. TEGRETOL-XR [Suspect]
     Indication: PETIT MAL EPILEPSY
     Dosage: 1/2 TABLET IN THE EVENING
     Route: 048
     Dates: start: 20081024
  3. CITALOPRAM HYDROBROMIDE [Concomitant]
     Indication: DEPRESSION
     Dosage: UNK
     Dates: start: 20081119
  4. CALCITRIOL [Concomitant]
     Indication: HORMONE REPLACEMENT THERAPY
     Dosage: UNK
     Route: 048
  5. EUTHYROX [Concomitant]
     Indication: HORMONE REPLACEMENT THERAPY
     Dosage: UNK
     Route: 048
  6. HYDROCORTISON                           /CZE/ [Concomitant]
     Indication: HORMONE REPLACEMENT THERAPY
     Route: 048
  7. PARATHYROID HORMONES [Concomitant]
     Indication: HORMONE REPLACEMENT THERAPY
     Route: 048
  8. ST. JOHN'S WORT [Concomitant]
     Dosage: UNK

REACTIONS (5)
  - DEPRESSION [None]
  - FEELING COLD [None]
  - MALAISE [None]
  - NAUSEA [None]
  - SPINAL CORD NEOPLASM [None]
